FAERS Safety Report 6432900-5 (Version None)
Quarter: 2009Q4

REPORT INFORMATION
  Report Type: 
  Country: None (occurrence: None)
  Receive Date: 20091109
  Receipt Date: 20091028
  Transmission Date: 20100525
  Serious: Yes (Disabling, Other)
  Sender: FDA-Public Use
  Company Number: US-MERCK-0908USA00768

PATIENT
  Age: 73 Year
  Sex: Female

DRUGS (2)
  1. FOSAMAX [Suspect]
     Indication: OSTEOPENIA
     Route: 048
     Dates: start: 19990601, end: 20010426
  2. FOSAMAX [Suspect]
     Route: 048
     Dates: start: 20010426, end: 20060620

REACTIONS (13)
  - ARTHRITIS [None]
  - ARTHROPATHY [None]
  - BONE DISORDER [None]
  - BREAST CANCER [None]
  - CHONDROPATHY [None]
  - FRACTURE MALUNION [None]
  - MENISCUS LESION [None]
  - OSTEOARTHRITIS [None]
  - OSTEONECROSIS [None]
  - TENDON RUPTURE [None]
  - TENDONITIS [None]
  - TENOSYNOVITIS [None]
  - TOOTH DISORDER [None]
